FAERS Safety Report 7519597-8 (Version None)
Quarter: 2011Q2

REPORT INFORMATION
  Report Type: 
  Country: None (occurrence: None)
  Receive Date: 20110602
  Receipt Date: 20110523
  Transmission Date: 20111010
  Serious: Yes (Hospitalization)
  Sender: FDA-Public Use
  Company Number: A0893341A

PATIENT
  Age: 66 Year
  Sex: Male
  Weight: 106.8 kg

DRUGS (11)
  1. ATENOLOL [Concomitant]
  2. PAXIL [Concomitant]
  3. AMIODARONE HCL [Concomitant]
  4. DIOVAN [Concomitant]
  5. LASIX [Concomitant]
  6. AVANDIA [Suspect]
     Dosage: 4MG PER DAY
     Route: 048
     Dates: end: 20091219
  7. LOVASTATIN [Concomitant]
  8. ASPIRIN [Concomitant]
  9. NIASPAN [Concomitant]
  10. POTASSIUM CHLORIDE [Concomitant]
  11. AMARYL [Concomitant]

REACTIONS (3)
  - HAEMORRHAGIC STROKE [None]
  - CARDIAC FAILURE CONGESTIVE [None]
  - ACUTE CORONARY SYNDROME [None]
